FAERS Safety Report 8346675-6 (Version None)
Quarter: 2012Q2

REPORT INFORMATION
  Report Type: 
  Country: None (occurrence: None)
  Receive Date: 20120508
  Receipt Date: 20120508
  Transmission Date: 20120825
  Serious: Yes (Disabling)
  Sender: FDA-Public Use
  Company Number: None

PATIENT
  Age: 79 Year
  Sex: Male
  Weight: 97.7 kg

DRUGS (1)
  1. LEVOFLOXACIN 750 MG ORTHO-MCNEIL-JANSSEN PHARMACEUTICALS, INC. [Suspect]
     Indication: OROPHARYNGEAL PAIN
     Dosage: LEVOFLOXACIN 750 MG DAILY ORAL
     Route: 048
     Dates: start: 20120217

REACTIONS (1)
  - TENDONITIS [None]
